FAERS Safety Report 8008143-0 (Version None)
Quarter: 2011Q4

REPORT INFORMATION
  Report Type: 
  Country: None (occurrence: None)
  Receive Date: 20111227
  Receipt Date: 20111223
  Transmission Date: 20120403
  Serious: Yes (Other)
  Sender: FDA-Public Use
  Company Number: PHHY2011AU111849

PATIENT
  Sex: Female

DRUGS (1)
  1. ZOLEDRONOC ACID [Suspect]
     Dosage: UNK UKN, UNK
     Route: 042
     Dates: start: 20110701

REACTIONS (4)
  - VIRAL INFECTION [None]
  - RIB FRACTURE [None]
  - ARTHRALGIA [None]
  - MUSCULOSKELETAL PAIN [None]
